FAERS Safety Report 13569978 (Version 2)
Quarter: 2017Q3

REPORT INFORMATION
  Report Type: Report from Study
  Country: US (occurrence: US)
  Receive Date: 20170522
  Receipt Date: 20170706
  Transmission Date: 20171127
  Serious: Yes (Death)
  Sender: FDA-Public Use
  Company Number: US-ACTELION-A-NJ2015-114763

PATIENT
  Age: 72 Year
  Sex: Male

DRUGS (9)
  1. LEVOTHYROXINE. [Concomitant]
     Active Substance: LEVOTHYROXINE
     Dosage: UNK
  2. LIPITOR [Concomitant]
     Active Substance: ATORVASTATIN CALCIUM
     Dosage: UNK
  3. FENOFIBRATE. [Concomitant]
     Active Substance: FENOFIBRATE
     Dosage: UNK
  4. VALCHLOR [Suspect]
     Active Substance: MECHLORETHAMINE
     Indication: MYCOSIS FUNGOIDES
     Dosage: UNK, QD
     Route: 061
     Dates: start: 20160418
  5. VALCHLOR [Suspect]
     Active Substance: MECHLORETHAMINE
     Dosage: UNK
     Route: 061
     Dates: start: 20150515
  6. CLOBETASOL [Concomitant]
     Active Substance: CLOBETASOL
     Dosage: UNK
  7. TARGRETIN [Concomitant]
     Active Substance: BEXAROTENE
     Dosage: UNK
  8. CIPROFLOXACIN. [Concomitant]
     Active Substance: CIPROFLOXACIN
     Dosage: UNK
  9. FISH OIL [Concomitant]
     Active Substance: FISH OIL

REACTIONS (5)
  - Condition aggravated [Unknown]
  - Therapeutic response decreased [Unknown]
  - Mycosis fungoides recurrent [Unknown]
  - Death [Fatal]
  - Disease progression [Unknown]

NARRATIVE: CASE EVENT DATE: 20170514
